FAERS Safety Report 7799448-7 (Version None)
Quarter: 2011Q4

REPORT INFORMATION
  Report Type: 
  Country: None (occurrence: None)
  Receive Date: 20111004
  Receipt Date: 20110922
  Transmission Date: 20120403
  Serious: Yes (Hospitalization, Other)
  Sender: FDA-Public Use
  Company Number: AUR-APL-2011-01749

PATIENT
  Age: 72 Year
  Sex: Female

DRUGS (5)
  1. METFORMIN HCL [Suspect]
     Indication: PRODUCT USED FOR UNKNOWN INDICATION
  2. ENALAPRIL MALEATE [Concomitant]
  3. OMEPRAZOLE [Concomitant]
  4. ASPIRIN [Concomitant]
  5. FUROSEMIDE [Concomitant]

REACTIONS (14)
  - HYPERKALAEMIA [None]
  - TACHYPNOEA [None]
  - ABDOMINAL DISCOMFORT [None]
  - BLOOD GLUCOSE INCREASED [None]
  - FLUID INTAKE REDUCED [None]
  - LACTIC ACIDOSIS [None]
  - VOMITING [None]
  - ASTHENIA [None]
  - PAIN IN EXTREMITY [None]
  - DRUG LEVEL INCREASED [None]
  - HYPERVOLAEMIA [None]
  - BLOOD PRESSURE DECREASED [None]
  - RENAL FAILURE ACUTE [None]
  - METABOLIC ACIDOSIS [None]
